FAERS Safety Report 10288885 (Version 2)
Quarter: 2014Q3

REPORT INFORMATION
  Report Type: Report from Study
  Country: FR (occurrence: FR)
  Receive Date: 20140709
  Receipt Date: 20140709
  Transmission Date: 20150326
  Serious: Yes (Hospitalization)
  Sender: FDA-Public Use
  Company Number: PHHY2014FR076837

PATIENT
  Age: 45 Year
  Sex: Male
  Weight: 53.5 kg

DRUGS (23)
  1. BACTRIM [Concomitant]
     Active Substance: SULFAMETHOXAZOLE\TRIMETHOPRIM
     Dosage: 1 DF, QW3
     Dates: start: 20131120
  2. NEBIVOLOL [Concomitant]
     Active Substance: NEBIVOLOL
     Dosage: 5 MG, QD
  3. ARANESP [Concomitant]
     Active Substance: DARBEPOETIN ALFA
     Dosage: 40 MG, EVERY 15 DAYS
  4. NICOPATCH [Concomitant]
     Active Substance: NICOTINE
     Dosage: 21 MG, QD
  5. ASPEGIC [Concomitant]
     Active Substance: ASPIRIN DL-LYSINE
     Dosage: 100 MG, QD
  6. ZOPICLONE [Concomitant]
     Active Substance: ZOPICLONE
     Dosage: 16.5 MG, QD
  7. PROGRAF [Concomitant]
     Active Substance: TACROLIMUS\TACROLIMUS ANHYDROUS
     Dosage: 10 MG, DAILY
     Dates: start: 20140131, end: 20140208
  8. PROGRAF [Concomitant]
     Active Substance: TACROLIMUS\TACROLIMUS ANHYDROUS
     Dosage: 9.5 MG, DAILY
     Dates: start: 20140209
  9. PERSANTINE [Concomitant]
     Active Substance: DIPYRIDAMOLE
     Dosage: 2 DF, BID
  10. COUMADINE [Concomitant]
     Active Substance: WARFARIN SODIUM
     Dosage: 7 MG, QD
  11. NEBIVOLOL [Concomitant]
     Active Substance: NEBIVOLOL
     Dosage: 5 MG, BID
  12. BICARBONATE SODIUM [Concomitant]
     Dosage: 2 G, BID
  13. BICARBONATE SODIUM [Concomitant]
     Dosage: 2 G, TID
  14. AMLODIPINE [Concomitant]
     Active Substance: AMLODIPINE BESYLATE
     Dosage: 10 MG, QD
  15. CALCIPARINE [Concomitant]
     Active Substance: HEPARIN CALCIUM
     Dosage: 6500 IU, UNK
  16. PROGRAF [Concomitant]
     Active Substance: TACROLIMUS\TACROLIMUS ANHYDROUS
     Indication: TRANSPLANT REJECTION
     Dosage: 12 MG, DAILY
     Dates: start: 20131204, end: 20131212
  17. ROVALCYTE [Concomitant]
     Active Substance: VALGANCICLOVIR HYDROCHLORIDE
     Dosage: 450 MG, BID
  18. MYCOPHENOLIC ACID [Suspect]
     Active Substance: MYCOPHENOLIC ACID
     Indication: PROPHYLAXIS AGAINST TRANSPLANT REJECTION
     Dosage: 1440 MG, DAILY
     Route: 048
     Dates: start: 20131120
  19. MYCOPHENOLIC ACID [Suspect]
     Active Substance: MYCOPHENOLIC ACID
     Indication: PROPHYLAXIS AGAINST TRANSPLANT REJECTION
     Dosage: 720 MG, DAILY
     Route: 048
     Dates: start: 2014
  20. IMODIUM [Concomitant]
     Active Substance: LOPERAMIDE HYDROCHLORIDE
     Dosage: 1 DF, TID
  21. LEDERFOLINE [Concomitant]
     Active Substance: LEUCOVORIN CALCIUM
     Dosage: 25 MG, QW3
  22. EUPRESSYL [Concomitant]
     Active Substance: URAPIDIL
     Dosage: 30 MG, BID
  23. ZOPICLONE [Concomitant]
     Active Substance: ZOPICLONE
     Dosage: 7.5 MG, QD

REACTIONS (15)
  - Pancreatitis acute [Recovered/Resolved]
  - Lipase increased [Unknown]
  - Diarrhoea [Recovered/Resolved]
  - Vascular occlusion [Recovered/Resolved]
  - Transplant dysfunction [Unknown]
  - Arterial stenosis [Unknown]
  - Urinary retention [Unknown]
  - Intestinal obstruction [Unknown]
  - Chills [Unknown]
  - Blood pressure increased [Recovered/Resolved]
  - Gastroenteritis viral [Recovered/Resolved]
  - Vomiting [Recovered/Resolved]
  - Abdominal pain [Unknown]
  - Peripheral artery stenosis [Unknown]
  - Arterial thrombosis [Unknown]

NARRATIVE: CASE EVENT DATE: 20131210
